FAERS Safety Report 17658435 (Version 1)
Quarter: 2020Q2

REPORT INFORMATION
  Report Type: Report from Study
  Country: None (occurrence: IT)
  Receive Date: 20200412
  Receipt Date: 20200412
  Transmission Date: 20200713
  Serious: Yes (Death)
  Sender: FDA-Public Use
  Company Number: IT-ABBVIE-20K-083-3360184-00

PATIENT
  Age: 58 Year
  Weight: 80 kg

DRUGS (10)
  1. ISAVUCONAZOLE [Concomitant]
     Active Substance: ISAVUCONAZOLE
     Indication: PYREXIA
     Route: 042
     Dates: start: 202002, end: 20200408
  2. VENCLYXTO [Suspect]
     Active Substance: VENETOCLAX
     Indication: ACUTE LYMPHOCYTIC LEUKAEMIA REFRACTORY
     Route: 048
     Dates: start: 20190403, end: 20190403
  3. TRIAZOLAM. [Concomitant]
     Active Substance: TRIAZOLAM
     Indication: INSOMNIA
     Dosage: 10 GTT/DAY
     Route: 048
     Dates: end: 20200406
  4. AMIKACIN. [Concomitant]
     Active Substance: AMIKACIN
     Indication: PYREXIA
     Route: 042
     Dates: start: 202002, end: 20200408
  5. VENCLYXTO [Suspect]
     Active Substance: VENETOCLAX
     Route: 048
     Dates: start: 20190406, end: 20190407
  6. METHYLPREDNISOLON [Concomitant]
     Active Substance: METHYLPREDNISOLONE
     Indication: PYREXIA
     Route: 042
     Dates: end: 20200408
  7. PARACETAMOL [Concomitant]
     Active Substance: ACETAMINOPHEN
     Indication: PYREXIA
     Route: 042
     Dates: end: 20200408
  8. LINEZOLID. [Concomitant]
     Active Substance: LINEZOLID
     Indication: PYREXIA
     Route: 042
     Dates: start: 202002, end: 20200408
  9. FUROSEMIDE. [Concomitant]
     Active Substance: FUROSEMIDE
     Indication: OEDEMA
     Route: 042
     Dates: end: 20200408
  10. VENCLYXTO [Suspect]
     Active Substance: VENETOCLAX
     Route: 048
     Dates: start: 20190404, end: 20190405

REACTIONS (3)
  - Respiratory distress [Fatal]
  - Pyrexia [Fatal]
  - Acute lymphocytic leukaemia refractory [Fatal]
